FAERS Safety Report 24879956 (Version 1)
Quarter: 2025Q1

REPORT INFORMATION
  Report Type: Spontaneous
  Country: US (occurrence: US)
  Receive Date: 20250123
  Receipt Date: 20250123
  Transmission Date: 20250409
  Serious: No
  Sender: BIOVITRUM
  Company Number: US-BIOVITRUM-2025-US-001031

PATIENT
  Sex: Male

DRUGS (1)
  1. VONJO [Suspect]
     Active Substance: PACRITINIB
     Indication: Immune thrombocytopenia

REACTIONS (2)
  - Drug effect less than expected [Not Recovered/Not Resolved]
  - Intentional product misuse [Unknown]
